FAERS Safety Report 17551175 (Version 1)
Quarter: 2020Q1

REPORT INFORMATION
  Report Type: Report from Study
  Country: US (occurrence: US)
  Receive Date: 20200317
  Receipt Date: 20200317
  Transmission Date: 20200409
  Serious: Yes (Other)
  Sender: FDA-Public Use
  Company Number: US-JNJFOC-20190635243

PATIENT
  Age: 61 Year
  Sex: Male
  Weight: 74.2 kg

DRUGS (1)
  1. APALUTAMIDE [Suspect]
     Active Substance: APALUTAMIDE
     Indication: PROSTATE CANCER
     Route: 048
     Dates: start: 20190410, end: 20190609

REACTIONS (2)
  - Radiation skin injury [Unknown]
  - Stomatitis [Unknown]

NARRATIVE: CASE EVENT DATE: 20190610
